FAERS Safety Report 5645874-1 (Version None)
Quarter: 2008Q1

REPORT INFORMATION
  Report Type: 
  Country: None (occurrence: None)
  Receive Date: 20080131
  Receipt Date: 20071213
  Transmission Date: 20080703
  Serious: No
  Sender: FDA-Public Use
  Company Number: 163-21880-07120770

PATIENT
  Age: 57 Year
  Sex: Female

DRUGS (2)
  1. REVLIMID [Suspect]
     Indication: MULTIPLE MYELOMA
     Dosage: 5 MG, 1 IN 1 D, ORAL; 10 MG, DAILY X 21 DAYS, ORAL
     Route: 048
     Dates: start: 20070726, end: 20070901
  2. REVLIMID [Suspect]
     Indication: MULTIPLE MYELOMA
     Dosage: 5 MG, 1 IN 1 D, ORAL; 10 MG, DAILY X 21 DAYS, ORAL
     Route: 048
     Dates: start: 20070907

REACTIONS (2)
  - BONE PAIN [None]
  - FATIGUE [None]
